FAERS Safety Report 6346708-2 (Version None)
Quarter: 2009Q3

REPORT INFORMATION
  Report Type: 
  Country: None (occurrence: None)
  Receive Date: 20090904
  Receipt Date: 20090827
  Transmission Date: 20100115
  Serious: Yes (Death)
  Sender: FDA-Public Use
  Company Number: GXKR2009SI09689

PATIENT
  Age: 44 Year
  Sex: Male

DRUGS (1)
  1. KETOPROFEN [Suspect]
     Indication: HEADACHE
     Dosage: ; ORAL
     Route: 048

REACTIONS (3)
  - ASTHENIA [None]
  - DECOMPRESSION SICKNESS [None]
  - DECREASED ACTIVITY [None]
